FAERS Safety Report 11967250 (Version 1)
Quarter: 2016Q1

REPORT INFORMATION
  Report Type: Spontaneous
  Country: DE (occurrence: DE)
  Receive Date: 20160127
  Receipt Date: 20160127
  Transmission Date: 20160526
  Serious: Yes (Death)
  Sender: FDA-Public Use
  Company Number: GXKR2016DE000625

PATIENT
  Age: 94 Year
  Sex: Female

DRUGS (4)
  1. METOHEXAL [Suspect]
     Active Substance: METOPROLOL SUCCINATE
     Indication: PRODUCT USED FOR UNKNOWN INDICATION
     Dosage: 95 MG, BID FOR SEVERAL DAYS
     Route: 048
  2. FENTANYL. [Concomitant]
     Active Substance: FENTANYL
     Indication: PRODUCT USED FOR UNKNOWN INDICATION
     Dosage: 25 UG/HR, UNK
     Route: 062
  3. TORASEMID [Concomitant]
     Active Substance: TORSEMIDE
     Indication: PRODUCT USED FOR UNKNOWN INDICATION
     Dosage: 200 MG, BID
     Route: 048
  4. NOVAMINSULFON [Concomitant]
     Active Substance: METAMIZOLE
     Indication: PRODUCT USED FOR UNKNOWN INDICATION
     Dosage: 40 DRP, TID
     Route: 048

REACTIONS (10)
  - Drug administration error [Fatal]
  - Petechiae [Fatal]
  - Dyspnoea [Fatal]
  - Burning sensation [Fatal]
  - Victim of homicide [Fatal]
  - Anaphylactic shock [Fatal]
  - Vomiting [Fatal]
  - Anal inflammation [Fatal]
  - Nausea [Fatal]
  - Dry mouth [Fatal]
